FAERS Safety Report 4926227-8 (Version None)
Quarter: 2006Q1

REPORT INFORMATION
  Report Type: 
  Country: None (occurrence: None)
  Receive Date: 20060228
  Receipt Date: 20051213
  Transmission Date: 20060701
  Serious: No
  Sender: FDA-Public Use
  Company Number: US-GLAXOSMITHKLINE-A0585677A

PATIENT
  Age: 47 Year
  Sex: Female

DRUGS (2)
  1. LAMICTAL [Suspect]
     Indication: BIPOLAR DISORDER
     Dosage: 150MG PER DAY
     Route: 048
  2. RISPERDAL [Concomitant]

REACTIONS (5)
  - DERMATITIS ACNEIFORM [None]
  - MILIA [None]
  - PAIN [None]
  - SCAR [None]
  - SOMNOLENCE [None]
